FAERS Safety Report 8492867-5 (Version None)
Quarter: 2012Q3

REPORT INFORMATION
  Report Type: 
  Country: None (occurrence: None)
  Receive Date: 20120706
  Receipt Date: 20120627
  Transmission Date: 20120928
  Serious: Yes (Other)
  Sender: FDA-Public Use
  Company Number: US-JNJFOC-20100806276

PATIENT
  Sex: Female

DRUGS (5)
  1. LEVAQUIN [Suspect]
     Indication: CYSTITIS
     Route: 048
     Dates: start: 20000101, end: 20090101
  2. LEVAQUIN [Suspect]
     Indication: COLITIS ULCERATIVE
     Route: 042
  3. LEVAQUIN [Suspect]
     Route: 042
  4. LEVAQUIN [Suspect]
     Route: 042
  5. LEVAQUIN [Suspect]
     Indication: KIDNEY INFECTION
     Route: 048
     Dates: start: 20000101, end: 20090101

REACTIONS (3)
  - TENDONITIS [None]
  - DEPRESSION [None]
  - JOINT INJURY [None]
